FAERS Safety Report 7492387-0 (Version None)
Quarter: 2011Q2

REPORT INFORMATION
  Report Type: 
  Country: None (occurrence: None)
  Receive Date: 20110519
  Receipt Date: 20110425
  Transmission Date: 20111010
  Serious: Yes (Hospitalization, Other)
  Sender: FDA-Public Use
  Company Number: US-BAYER-2010-004585

PATIENT
  Age: 31 Year
  Sex: Female
  Weight: 68.027 kg

DRUGS (23)
  1. IBUPROFEN [Concomitant]
  2. DIFLUCAN [Concomitant]
     Dosage: 200 MG, UNK
     Route: 048
  3. CLINDAMYCIN [Concomitant]
     Indication: SHUNT INFECTION
     Dosage: 600 MG, TID
     Route: 042
     Dates: start: 20100317, end: 20100318
  4. MORPHINE [Concomitant]
     Dosage: 2 MG, UNK
     Route: 042
  5. DARVOCET-N 50 [Concomitant]
     Indication: PAIN
     Dosage: UNK UNK, PRN
     Dates: start: 20100317
  6. VANCOMYCIN [Concomitant]
     Dosage: 1500 MG, BID
     Route: 042
  7. SECTRAL [Concomitant]
     Indication: HYPERTENSION
  8. VANCOMYCIN [Concomitant]
     Indication: SHUNT INFECTION
     Dosage: 1 G, BID
     Route: 042
  9. ONDANSETRON [Concomitant]
     Dosage: 10 MG, UNK
     Route: 030
  10. DROPERIDOL [Concomitant]
     Dosage: 0.625 MG, UNK
     Route: 042
  11. ACETAMINOPHEN W/ CODEINE [Concomitant]
     Route: 048
  12. PROPOXYPHENE HCL AND ACETAMINOPHEN [Concomitant]
     Route: 048
  13. ACYCLOVIR [Concomitant]
     Dosage: 400 MG, BID
  14. KETAMINE HCL [Concomitant]
     Route: 030
  15. VANCOMYCIN [Concomitant]
     Dosage: 1250 MG, BID
     Route: 042
  16. USPECIFIED ANTIBIOTICS [Concomitant]
  17. LACTULOSE [Concomitant]
  18. ACEBUTOLOL [Concomitant]
     Dosage: 200 MG, UNK
     Route: 048
  19. YASMIN [Suspect]
     Indication: PRODUCT USED FOR UNKNOWN INDICATION
     Dosage: UNK
     Dates: start: 20080101
  20. DROSPIRENONE AND ETHINYL ESTRADIOL [Suspect]
     Indication: PRODUCT USED FOR UNKNOWN INDICATION
     Dosage: UNK
     Dates: start: 20080101
  21. FLEXERIL [Concomitant]
  22. DIAMOX [Concomitant]
     Dosage: 125 MG, BID
  23. BISACODYL [Concomitant]
     Dosage: 10 MG, UNK
     Route: 054

REACTIONS (8)
  - MYOCARDIAL INFARCTION [None]
  - ANXIETY [None]
  - FEAR [None]
  - PULMONARY EMBOLISM [None]
  - CEREBROVASCULAR ACCIDENT [None]
  - GALLBLADDER DISORDER [None]
  - DEEP VEIN THROMBOSIS [None]
  - PAIN [None]
